FAERS Safety Report 5192980-4 (Version None)
Quarter: 2006Q4

REPORT INFORMATION
  Report Type: 
  Country: None (occurrence: None)
  Receive Date: 20061228
  Receipt Date: 20060331
  Transmission Date: 20070319
  Serious: No
  Sender: FDA-Public Use
  Company Number: US-GLAXOSMITHKLINE-A0599936A

PATIENT
  Age: 51 Year
  Sex: Female

DRUGS (9)
  1. FLONASE [Suspect]
     Dosage: 2PUFF PER DAY
     Route: 045
     Dates: start: 20060331
  2. NEURONTIN [Concomitant]
  3. HUMALOG [Concomitant]
  4. LANTUS [Concomitant]
  5. CELEXA [Concomitant]
  6. HYZAAR [Concomitant]
  7. GLUCOPHAGE [Concomitant]
  8. PRILOSEC [Concomitant]
  9. BIOTIN [Concomitant]

REACTIONS (1)
  - TONGUE DISCOLOURATION [None]
